FAERS Safety Report 17584166 (Version 2)
Quarter: 2020Q3

REPORT INFORMATION
  Report Type: Spontaneous
  Country: JP (occurrence: JP)
  Receive Date: 20200326
  Receipt Date: 20200715
  Transmission Date: 20201102
  Serious: Yes (Death, Other)
  Sender: FDA-Public Use
  Company Number: JP-JAZZ-2020-JP-004179

PATIENT
  Age: 62 Year
  Sex: Female
  Weight: 58.6 kg

DRUGS (4)
  1. BUSULFAN. [Concomitant]
     Active Substance: BUSULFAN
     Indication: BONE MARROW CONDITIONING REGIMEN
  2. FLUDARABINE [Concomitant]
     Active Substance: FLUDARABINE PHOSPHATE
     Indication: BONE MARROW CONDITIONING REGIMEN
  3. DEFITELIO [Suspect]
     Active Substance: DEFIBROTIDE SODIUM
     Indication: VENOOCCLUSIVE LIVER DISEASE
     Dosage: 25 MILLIGRAM/KILOGRAM, QID
     Route: 042
     Dates: start: 20200307, end: 20200314
  4. MELPHALAN. [Concomitant]
     Active Substance: MELPHALAN
     Indication: BONE MARROW CONDITIONING REGIMEN

REACTIONS (6)
  - Haemorrhage [Fatal]
  - Venoocclusive liver disease [Fatal]
  - Lymphoma [Fatal]
  - Organ failure [Fatal]
  - Disease progression [Fatal]
  - Disease progression [Fatal]

NARRATIVE: CASE EVENT DATE: 202003
